FAERS Safety Report 13515403 (Version 3)
Quarter: 2017Q4

REPORT INFORMATION
  Report Type: Report from Study
  Country: None (occurrence: US)
  Receive Date: 20170504
  Receipt Date: 20171005
  Transmission Date: 20180320
  Serious: Yes (Hospitalization)
  Sender: FDA-Public Use
  Company Number: US-ABBVIE-17K-163-1957347-00

PATIENT
  Age: 55 Year
  Sex: Male

DRUGS (1)
  1. ANDROGEL [Suspect]
     Active Substance: TESTOSTERONE
     Indication: HORMONE REPLACEMENT THERAPY
     Dosage: 3 PUMPS DAILY
     Route: 061
     Dates: start: 2015

REACTIONS (1)
  - Gastric polyps [Recovered/Resolved]

NARRATIVE: CASE EVENT DATE: 201702
